FAERS Safety Report 5419201-9 (Version None)
Quarter: 2007Q3

REPORT INFORMATION
  Report Type: 
  Country: None (occurrence: None)
  Receive Date: 20070820
  Receipt Date: 20070813
  Transmission Date: 20080115
  Serious: Yes (Hospitalization)
  Sender: FDA-Public Use
  Company Number: US-ROXANE LABORATORIES, INC-2007-BP-19051RO

PATIENT
  Age: 36 Year
  Sex: Female

DRUGS (13)
  1. MIDAZOLAM HCL [Suspect]
     Indication: ANAESTHESIA
  2. BENZOCAINE [Suspect]
     Indication: ANAESTHESIA
  3. BUTYL AMINOBENZOATE [Suspect]
     Indication: ANAESTHESIA
  4. TETRACAINE POLYGYL STERILE OPHTHALMIC SOLUTION [Suspect]
     Indication: ANAESTHESIA
  5. RISPERIDONE [Concomitant]
     Indication: BIPOLAR DISORDER
  6. LITHIUM CARBONATE [Concomitant]
     Indication: BIPOLAR DISORDER
  7. VANCOMYCIN [Concomitant]
  8. AMPICILLIN AND SULBACTAM [Concomitant]
  9. ZOLPIDEM TARTRATE [Concomitant]
  10. MORPHINE SULFATE [Concomitant]
  11. ACETAMINOPHEN [Concomitant]
  12. COCAINE [Concomitant]
     Indication: DRUG ABUSER
  13. CRYSTAL METHAMPHETAMINE [Concomitant]
     Indication: DRUG ABUSER

REACTIONS (3)
  - CYANOSIS [None]
  - HEART RATE DECREASED [None]
  - METHAEMOGLOBINAEMIA [None]
